FAERS Safety Report 22394891 (Version 1)
Quarter: 2023Q2

REPORT INFORMATION
  Report Type: Spontaneous
  Country: US (occurrence: None)
  Receive Date: 20230531
  Receipt Date: 20230531
  Transmission Date: 20230722
  Serious: Yes (Other)
  Sender: FDA-Public Use
  Company Number: None

PATIENT
  Age: 81 Year
  Sex: Female
  Weight: 65.32 kg

DRUGS (1)
  1. AMIODARONE HYDROCHLORIDE [Suspect]
     Active Substance: AMIODARONE HYDROCHLORIDE
     Indication: Atrial fibrillation
     Dosage: FREQUENCY : DAILY;?
     Route: 048
     Dates: end: 20220507

REACTIONS (12)
  - Erythema [None]
  - Ocular hyperaemia [None]
  - Fatigue [None]
  - Asthenia [None]
  - Feeling cold [None]
  - Heart rate decreased [None]
  - Paraesthesia [None]
  - Hypoaesthesia [None]
  - Abnormal dreams [None]
  - Alopecia [None]
  - Headache [None]
  - Dizziness [None]

NARRATIVE: CASE EVENT DATE: 20230420
